FAERS Safety Report 5678756-X (Version None)
Quarter: 2008Q1

REPORT INFORMATION
  Report Type: 
  Country: None (occurrence: None)
  Receive Date: 20080324
  Receipt Date: 20080324
  Transmission Date: 20080703
  Serious: Yes (Other)
  Sender: FDA-Public Use
  Company Number: None

PATIENT
  Age: 60 Year
  Sex: Female
  Weight: 106.5 kg

DRUGS (2)
  1. TOBRAMYCIN [Suspect]
     Indication: ARTHRITIS INFECTIVE
     Dosage: 3.6 GRAMS ONCE
     Dates: start: 20070208, end: 20070208
  2. VANCOMYCIN [Suspect]
     Indication: ARTHRITIS INFECTIVE
     Dosage: 3 GRAMS ONCE
     Dates: start: 20070208, end: 20070208

REACTIONS (2)
  - BLOOD CREATININE INCREASED [None]
  - DIZZINESS [None]
